FAERS Safety Report 5299262-0 (Version None)
Quarter: 2007Q2

REPORT INFORMATION
  Report Type: 
  Country: None (occurrence: None)
  Receive Date: 20070417
  Receipt Date: 20070405
  Transmission Date: 20071010
  Serious: Yes (Hospitalization)
  Sender: FDA-Public Use
  Company Number: GB-ROCHE-484296

PATIENT
  Age: 72 Year
  Sex: Female
  Weight: 92.8 kg

DRUGS (13)
  1. XENICAL [Suspect]
     Indication: OBESITY
     Route: 048
     Dates: start: 20061225, end: 20070218
  2. AMOXICILLIN [Concomitant]
  3. HYPOSTOP [Concomitant]
  4. NOVOMIX [Concomitant]
  5. SIMVASTATIN [Concomitant]
  6. ACARBOSE [Concomitant]
  7. ASPIRIN [Concomitant]
  8. METFORMIN HCL [Concomitant]
  9. TELMISARTAN [Concomitant]
  10. EZETIMIBE [Concomitant]
  11. FELODIPINE EXTENDED RELEASE [Concomitant]
  12. MOMETASONE FUROATE [Concomitant]
  13. INDAPAMIDE [Concomitant]

REACTIONS (3)
  - CORONARY ARTERY DISEASE [None]
  - MALAISE [None]
  - MYOCARDIAL ISCHAEMIA [None]
